FAERS Safety Report 13168757 (Version 3)
Quarter: 2017Q1

REPORT INFORMATION
  Report Type: Spontaneous
  Country: PL (occurrence: PL)
  Receive Date: 20170131
  Receipt Date: 20170224
  Transmission Date: 20170428
  Serious: No
  Sender: FDA-Public Use
  Company Number: PL-ROCHE-1885403

PATIENT
  Sex: Female
  Weight: 60 kg

DRUGS (9)
  1. KADCYLA [Suspect]
     Active Substance: ADO-TRASTUZUMAB EMTANSINE
     Indication: PRODUCT USED FOR UNKNOWN INDICATION
     Route: 065
     Dates: start: 20160613, end: 20161205
  2. HERCEPTIN [Suspect]
     Active Substance: TRASTUZUMAB
     Indication: PRODUCT USED FOR UNKNOWN INDICATION
     Dosage: 6X, 19X
     Route: 042
     Dates: start: 20130117, end: 201305
  3. LAPATINIB [Suspect]
     Active Substance: LAPATINIB
     Indication: PRODUCT USED FOR UNKNOWN INDICATION
     Dosage: 8X
     Route: 065
     Dates: start: 20140307, end: 20150610
  4. XELODA [Suspect]
     Active Substance: CAPECITABINE
     Indication: PRODUCT USED FOR UNKNOWN INDICATION
     Dosage: 8X
     Route: 065
     Dates: start: 201503, end: 201506
  5. XELODA [Suspect]
     Active Substance: CAPECITABINE
     Dosage: DAILY FOR 14 DAYS, 8X
     Route: 065
     Dates: start: 20140307, end: 20140911
  6. DOCETAXEL. [Suspect]
     Active Substance: DOCETAXEL
     Indication: PRODUCT USED FOR UNKNOWN INDICATION
     Route: 065
  7. PERJETA [Suspect]
     Active Substance: PERTUZUMAB
     Indication: BREAST CANCER METASTATIC
     Dosage: LOADING DOSE
     Route: 065
     Dates: start: 20170125
  8. HERCEPTIN [Suspect]
     Active Substance: TRASTUZUMAB
     Dosage: 19X
     Route: 042
     Dates: start: 20130529, end: 20140213
  9. TAXOL [Suspect]
     Active Substance: PACLITAXEL
     Indication: PRODUCT USED FOR UNKNOWN INDICATION
     Route: 065
     Dates: start: 20130117, end: 201305

REACTIONS (1)
  - Off label use [Unknown]
